APPROVED DRUG PRODUCT: HYDROCORTISONE SODIUM SUCCINATE
Active Ingredient: HYDROCORTISONE SODIUM SUCCINATE
Strength: EQ 100MG BASE/VIAL
Dosage Form/Route: INJECTABLE;INJECTION
Application: A084737 | Product #002
Applicant: WATSON LABORATORIES INC
Approved: Approved Prior to Jan 1, 1982 | RLD: No | RS: No | Type: DISCN